FAERS Safety Report 5069067-4 (Version None)
Quarter: 2006Q3

REPORT INFORMATION
  Report Type: 
  Country: None (occurrence: None)
  Receive Date: 20060801
  Receipt Date: 20060801
  Transmission Date: 20061208
  Serious: Yes (Hospitalization)
  Sender: FDA-Public Use
  Company Number: None

PATIENT
  Sex: Male
  Weight: 127.0072 kg

DRUGS (2)
  1. PACLITAXEL [Suspect]
     Indication: LUNG NEOPLASM MALIGNANT
     Dosage: 75MG/M2   DAY 1, 8 Q21 DAYS   IV DRIP
     Route: 041
     Dates: start: 20060705, end: 20060718
  2. IRINOTECAN HCL [Suspect]
     Indication: LUNG NEOPLASM MALIGNANT
     Dosage: 50MG/M2    DAY 1,8 Q21 DAYS   IV DRIP
     Route: 041
     Dates: start: 20060705, end: 20060718

REACTIONS (5)
  - ASTHENIA [None]
  - DEHYDRATION [None]
  - DIARRHOEA [None]
  - NAUSEA [None]
  - VOMITING [None]
